FAERS Safety Report 8382131 (Version 3)
Quarter: 2012Q4

REPORT INFORMATION
  Report Type: Report from Study
  Country: US (occurrence: US)
  Receive Date: 20120201
  Receipt Date: 20120828
  Transmission Date: 20130627
  Serious: Yes (Hospitalization)
  Sender: FDA-Public Use
  Company Number: US-ASTELLAS-2012US000813

PATIENT
  Sex: Female

DRUGS (2)
  1. ERLOTINIB TABLET [Suspect]
     Indication: LUNG NEOPLASM MALIGNANT
     Dosage: 25 mg, Unknown/D
     Route: 048
     Dates: start: 20110131
  2. ERLOTINIB TABLET [Suspect]
     Dosage: 25 mg, bid
     Route: 048
     Dates: start: 20120131, end: 20120614

REACTIONS (4)
  - Incorrect dose administered [Unknown]
  - Staphylococcal skin infection [Unknown]
  - Urinary tract infection [Unknown]
  - Pneumonia [Recovering/Resolving]
